FAERS Safety Report 9202190 (Version 2)
Quarter: 2013Q2

REPORT INFORMATION
  Report Type: Spontaneous
  Country: US (occurrence: US)
  Receive Date: 20130401
  Receipt Date: 20130606
  Transmission Date: 20140414
  Serious: Yes (Death)
  Sender: FDA-Public Use
  Company Number: US-GLAXOSMITHKLINE-A1018112A

PATIENT
  Age: 62 Year
  Sex: Male
  Weight: 69.5 kg

DRUGS (14)
  1. VOTRIENT [Suspect]
     Indication: NEOPLASM MALIGNANT
     Dosage: 400MG TWICE PER DAY
     Route: 048
     Dates: start: 20120823
  2. CARAFATE [Concomitant]
  3. FOLIC ACID [Concomitant]
  4. ZOFRAN [Concomitant]
  5. VITAMIN B 12 [Concomitant]
  6. VITAMIN D [Concomitant]
  7. COLACE [Concomitant]
  8. OSCAL 500 + D [Concomitant]
  9. LEXAPRO [Concomitant]
  10. COREG [Concomitant]
  11. XGEVA [Concomitant]
  12. DILAUDID [Concomitant]
  13. FENTANYL [Concomitant]
  14. MORPHINE SULFATE [Concomitant]

REACTIONS (3)
  - Renal cancer [Fatal]
  - Pain [Unknown]
  - Renal cancer metastatic [Unknown]
